FAERS Safety Report 7524153-1 (Version None)
Quarter: 2011Q2

REPORT INFORMATION
  Report Type: 
  Country: None (occurrence: None)
  Receive Date: 20110606
  Receipt Date: 20110526
  Transmission Date: 20111010
  Serious: No
  Sender: FDA-Public Use
  Company Number: US-BIOGENIDEC-2010BI042136

PATIENT
  Sex: Female

DRUGS (1)
  1. TYSABRI [Suspect]
     Indication: MULTIPLE SCLEROSIS
     Route: 042
     Dates: start: 20090331

REACTIONS (6)
  - MUSCLE SPASMS [None]
  - FAECAL INCONTINENCE [None]
  - CYSTITIS [None]
  - FALL [None]
  - POOR QUALITY SLEEP [None]
  - NERVE COMPRESSION [None]
